FAERS Safety Report 14928028 (Version 1)
Quarter: 2018Q2

REPORT INFORMATION
  Report Type: Spontaneous
  Country: US (occurrence: US)
  Receive Date: 20180504
  Receipt Date: 20180504
  Transmission Date: 20180711
  Serious: No
  Sender: FDA-Public Use
  Company Number: None

PATIENT

DRUGS (1)
  1. OXYBUTYNIN ER [Suspect]
     Active Substance: OXYBUTYNIN

REACTIONS (1)
  - Treatment failure [None]
